FAERS Safety Report 10365632 (Version 1)
Quarter: 2014Q3

REPORT INFORMATION
  Report Type: Spontaneous
  Country: GB (occurrence: GB)
  Receive Date: 20140806
  Receipt Date: 20140806
  Transmission Date: 20150326
  Serious: Yes (Hospitalization, Other)
  Sender: FDA-Public Use
  Company Number: GB-PFIZER INC-2014214726

PATIENT
  Age: 68 Year
  Sex: Male

DRUGS (5)
  1. TRAMADOL [Concomitant]
     Active Substance: TRAMADOL
     Dosage: UNK
  2. PRADAXA [Suspect]
     Active Substance: DABIGATRAN ETEXILATE MESYLATE
     Indication: HIP ARTHROPLASTY
     Dosage: 220 MG, UNK
     Route: 048
     Dates: start: 20140706, end: 20140715
  3. PARACETAMOL [Concomitant]
     Active Substance: ACETAMINOPHEN
     Dosage: UNK
  4. CITALOPRAM [Concomitant]
     Active Substance: CITALOPRAM HYDROBROMIDE
     Dosage: 20 MG, UNK
  5. IBUPROFEN. [Suspect]
     Active Substance: IBUPROFEN
     Indication: HIP ARTHROPLASTY
     Dosage: 400 MG, 3X/DAY
     Route: 048
     Dates: start: 20140705, end: 20140715

REACTIONS (2)
  - Duodenal ulcer [Recovering/Resolving]
  - Melaena [Recovering/Resolving]

NARRATIVE: CASE EVENT DATE: 20140715
